FAERS Safety Report 6255197-8 (Version None)
Quarter: 2009Q3

REPORT INFORMATION
  Report Type: 
  Country: None (occurrence: None)
  Receive Date: 20090702
  Receipt Date: 20090624
  Transmission Date: 20100115
  Serious: No
  Sender: FDA-Public Use
  Company Number: US-BAYER-200924878NA

PATIENT
  Age: 55 Year
  Sex: Female

DRUGS (3)
  1. ULTRAVIST 300 [Suspect]
     Indication: COMPUTERISED TOMOGRAM ABDOMEN
     Dosage: TOTAL DAILY DOSE: 82 ML  UNIT DOSE: 200 ML
     Route: 042
     Dates: start: 20090624, end: 20090624
  2. TOPROL-XL [Concomitant]
  3. DETROL [Concomitant]

REACTIONS (2)
  - EYELID OEDEMA [None]
  - URTICARIA [None]
